FAERS Safety Report 15765359 (Version 2)
Quarter: 2019Q1

REPORT INFORMATION
  Report Type: Spontaneous
  Country: US (occurrence: US)
  Receive Date: 20181227
  Receipt Date: 20190102
  Transmission Date: 20190417
  Serious: Yes (Other)
  Sender: FDA-Public Use
  Company Number: US-SA-2018SA393443

PATIENT
  Sex: Female

DRUGS (2)
  1. SEVELAMER CARBONATE. [Suspect]
     Active Substance: SEVELAMER CARBONATE
     Dosage: RENVELA POWDER
  2. SEVELAMER CARBONATE. [Suspect]
     Active Substance: SEVELAMER CARBONATE
     Indication: BLOOD PHOSPHORUS
     Dosage: TABLET

REACTIONS (3)
  - Wrong technique in product usage process [Unknown]
  - Blood phosphorus increased [Unknown]
  - Tracheostomy [Unknown]

NARRATIVE: CASE EVENT DATE: 20160615
